FAERS Safety Report 5006224-7 (Version None)
Quarter: 2006Q1

REPORT INFORMATION
  Report Type: 
  Country: None (occurrence: None)
  Receive Date: 20060327
  Receipt Date: 20051128
  Transmission Date: 20060701
  Serious: No
  Sender: FDA-Public Use
  Company Number: 219855

PATIENT
  Age: 67 Year
  Sex: Male

DRUGS (12)
  1. AVASTIN [Suspect]
     Indication: COLORECTAL CANCER METASTATIC
     Dosage: 5 MG/KG, Q2W
     Dates: start: 20050828
  2. FLUOROURACIL [Concomitant]
  3. WARFARIN SODIUM [Concomitant]
  4. CELEXA [Concomitant]
  5. CELEBREX [Concomitant]
  6. KCL 10% (POTASSIUM CHLORIDE) [Concomitant]
  7. NEURONTIN [Concomitant]
  8. KYTRIL [Concomitant]
  9. ZYPREXA [Concomitant]
  10. OCUVITE (ASCORBIC ACID, COPPER NOS, LUTEIN, SELENIUM NOS, VITAMIN A, V [Concomitant]
  11. BACLOFEN [Concomitant]
  12. MAG-OX 400 (MAGNESIUM OXIDE) [Concomitant]

REACTIONS (1)
  - INTERNATIONAL NORMALISED RATIO INCREASED [None]
